FAERS Safety Report 22174521 (Version 1)
Quarter: 2023Q2

REPORT INFORMATION
  Report Type: Spontaneous
  Country: RU (occurrence: RU)
  Receive Date: 20230405
  Receipt Date: 20230405
  Transmission Date: 20230722
  Serious: Yes (Hospitalization, Other)
  Sender: FDA-Public Use
  Company Number: RU-ORGANON-O2303RUS002719

PATIENT
  Age: 63 Year
  Sex: Female

DRUGS (5)
  1. ARCOXIA [Suspect]
     Active Substance: ETORICOXIB
     Indication: Pain
     Dosage: 90 MG FOR A DURATION OF 7 DAYS, THEN THE PERIOD IS EXTENDED TO 14 DAYS
     Route: 048
  2. DIPROSPAN [Suspect]
     Active Substance: BETAMETHASONE DIPROPIONATE\BETAMETHASONE SODIUM PHOSPHATE
     Indication: Plantar fasciitis
     Dosage: UNK
     Dates: start: 2023
  3. LIDOCAINE [Concomitant]
     Active Substance: LIDOCAINE
     Dosage: UNK
  4. PROCAINE [Concomitant]
     Active Substance: PROCAINE
     Dosage: UNK
  5. AMINO ACIDS\DEXTROSE\ELECTROLYTES NOS [Concomitant]
     Active Substance: AMINO ACIDS\DEXTROSE\ELECTROLYTES NOS
     Dosage: UNK

REACTIONS (2)
  - Blood pressure increased [Unknown]
  - Hypertensive crisis [Unknown]
